FAERS Safety Report 5743925-7 (Version None)
Quarter: 2008Q2

REPORT INFORMATION
  Report Type: 
  Country: None (occurrence: None)
  Receive Date: 20080516
  Receipt Date: 20080513
  Transmission Date: 20081010
  Serious: Yes (Death)
  Sender: FDA-Public Use
  Company Number: OPTN-UK-0507S-0005

PATIENT
  Age: 58 Year
  Sex: Male

DRUGS (2)
  1. OPTISON [Suspect]
     Indication: DRUG USE FOR UNKNOWN INDICATION
     Dosage: 6 ML, SINGLE DOSE, I.V.
     Route: 042
     Dates: start: 20050721, end: 20050721
  2. DOBUTAMINE HCL [Concomitant]

REACTIONS (4)
  - ELECTROMECHANICAL DISSOCIATION [None]
  - FALL [None]
  - MYOCARDIAL RUPTURE [None]
  - PERICARDIAL EFFUSION [None]
